FAERS Safety Report 8783347 (Version 1)
Quarter: 2012Q4

REPORT INFORMATION
  Report Type: 
  Country: US (occurrence: US)
  Receive Date: 20120913
  Receipt Date: 20120913
  Transmission Date: 20130627
  Serious: No
  Sender: FDA-Public Use
  Company Number: US-VERTEX PHARMACEUTICAL INC.-AE-2012-008085

PATIENT
  Age: 52 Year
  Sex: Male
  Weight: 106.82 kg

DRUGS (8)
  1. INCIVEK [Suspect]
     Indication: HEPATITIS C
     Route: 048
     Dates: start: 20120309
  2. RIBAVIRIN [Concomitant]
     Indication: HEPATITIS C
     Route: 048
     Dates: start: 20120309
  3. PEGASYS [Concomitant]
     Indication: HEPATITIS C
     Route: 058
     Dates: start: 20120309
  4. LISINOPRIL [Concomitant]
     Indication: HYPERTENSION
  5. NORVASC [Concomitant]
     Indication: HYPERTENSION
  6. AMBIEN [Concomitant]
  7. TRAZADONE [Concomitant]
     Indication: EMOTIONAL DISORDER
  8. DEPAKOTE [Concomitant]
     Indication: EMOTIONAL DISORDER

REACTIONS (1)
  - Drug dose omission [Recovered/Resolved]
